FAERS Safety Report 18531178 (Version 5)
Quarter: 2021Q2

REPORT INFORMATION
  Report Type: Report from Study
  Country: GB (occurrence: GB)
  Receive Date: 20201122
  Receipt Date: 20210406
  Transmission Date: 20210717
  Serious: Yes (Hospitalization, Other)
  Sender: FDA-Public Use
  Company Number: NVSC2020GB304706

PATIENT
  Sex: Female

DRUGS (3)
  1. SANDOSTATIN LAR DEPOT [Suspect]
     Active Substance: OCTREOTIDE ACETATE
     Dosage: 30 MG, Q4W (ONCE 4 WEEKLY)
     Route: 030
  2. SANDOSTATIN LAR DEPOT [Suspect]
     Active Substance: OCTREOTIDE ACETATE
  3. SANDOSTATIN LAR DEPOT [Suspect]
     Active Substance: OCTREOTIDE ACETATE
     Indication: NEUROENDOCRINE TUMOUR
     Dosage: 30 MG, Q4W
     Route: 030

REACTIONS (11)
  - Lethargy [Unknown]
  - Disturbance in attention [Unknown]
  - Abdominal distension [Unknown]
  - Nausea [Unknown]
  - Pain [Unknown]
  - Dry mouth [Unknown]
  - Vomiting [Unknown]
  - Hepatic neoplasm [Unknown]
  - Pain in extremity [Unknown]
  - Pharyngitis [Unknown]
  - Abdominal pain lower [Unknown]
